FAERS Safety Report 18258644 (Version 4)
Quarter: 2021Q2

REPORT INFORMATION
  Report Type: Spontaneous
  Country: US (occurrence: US)
  Receive Date: 20200911
  Receipt Date: 20210406
  Transmission Date: 20210717
  Serious: Yes (Other)
  Sender: FDA-Public Use
  Company Number: US-PFIZER INC-2020339607

PATIENT
  Age: 9 Year
  Sex: Male
  Weight: 26.76 kg

DRUGS (3)
  1. GENOTROPIN [Suspect]
     Active Substance: SOMATROPIN
     Indication: GROWTH HORMONE DEFICIENCY
     Dosage: 0.8 MG, 1X/DAY
     Dates: start: 202003
  2. GENOTROPIN [Suspect]
     Active Substance: SOMATROPIN
     Dosage: 0.8 MG, 1X/DAY
  3. GENOTROPIN [Suspect]
     Active Substance: SOMATROPIN
     Indication: GROWTH HORMONE DEFICIENCY
     Dosage: 0.8 MG, 1X/DAY

REACTIONS (7)
  - Autism spectrum disorder [Unknown]
  - Chest pain [Unknown]
  - Headache [Unknown]
  - Drug administered in wrong device [Unknown]
  - Accidental overdose [Unknown]
  - Precocious puberty [Unknown]
  - Testicular pain [Unknown]

NARRATIVE: CASE EVENT DATE: 202003
